FAERS Safety Report 9896617 (Version 2)
Quarter: 2014Q1

REPORT INFORMATION
  Report Type: Spontaneous
  Country: US (occurrence: US)
  Receive Date: 20140213
  Receipt Date: 20140213
  Transmission Date: 20141002
  Serious: No
  Sender: FDA-Public Use
  Company Number: US-BRISTOL-MYERS SQUIBB COMPANY-19911775

PATIENT
  Age: 80 Year
  Sex: Female

DRUGS (12)
  1. ORENCIA [Suspect]
     Indication: RHEUMATOID ARTHRITIS
     Dosage: LATEST DOSE : 21-NOV-2013.
     Route: 042
     Dates: start: 2013
  2. PREDNISONE [Concomitant]
  3. VITAMIN B12 [Concomitant]
  4. LEVOTHYROXINE [Concomitant]
  5. SIMVASTATIN [Concomitant]
  6. LISINOPRIL [Concomitant]
  7. NORVASC [Concomitant]
  8. ASPIRIN [Concomitant]
  9. VICODIN [Concomitant]
  10. BENTYL [Concomitant]
  11. FOLIC ACID [Concomitant]
  12. VITAMIN D [Concomitant]

REACTIONS (1)
  - Influenza like illness [Unknown]
